FAERS Safety Report 21163686 (Version 3)
Quarter: 2023Q1

REPORT INFORMATION
  Report Type: Spontaneous
  Country: JP (occurrence: JP)
  Receive Date: 20220802
  Receipt Date: 20230130
  Transmission Date: 20230418
  Serious: Yes (Hospitalization, Other)
  Sender: FDA-Public Use
  Company Number: JP-BRISTOL-MYERS SQUIBB COMPANY-2022-083354

PATIENT
  Age: 7 Decade
  Sex: Male

DRUGS (3)
  1. YERVOY [Suspect]
     Active Substance: IPILIMUMAB
     Indication: Malignant melanoma
     Dosage: 4 EVERY 3 WEEK
     Route: 041
  2. OPDIVO [Suspect]
     Active Substance: NIVOLUMAB
     Indication: Malignant melanoma
     Route: 041
  3. OPDIVO [Suspect]
     Active Substance: NIVOLUMAB
     Dosage: ONCE IN EVERY 4 WEEK
     Route: 041

REACTIONS (4)
  - Autoimmune haemolytic anaemia [Recovered/Resolved with Sequelae]
  - Aplasia pure red cell [Recovered/Resolved with Sequelae]
  - Cellulitis [Recovered/Resolved]
  - Blood glucose increased [Unknown]
